FAERS Safety Report 10418859 (Version 1)
Quarter: 2014Q2

REPORT INFORMATION
  Report Type: Spontaneous
  Country: US (occurrence: None)
  Receive Date: 20140625
  Receipt Date: 20140625
  Transmission Date: 20141212
  Serious: Yes (Hospitalization)
  Sender: FDA-Public Use
  Company Number: A-US2014-95204

PATIENT
  Age: 74 Year
  Sex: Female

DRUGS (3)
  1. OPSUMIT (MACITENTAN) TABLET [Suspect]
     Indication: PULMONARY ARTERIAL HYPERTENSION
     Route: 048
     Dates: start: 20140217
  2. VENTAVIS (ILOPORST) INHALATION VAPOUR, SOLUTION [Suspect]
     Indication: PULMONARY ARTERIAL HYPERTENSION
     Dosage: 5 MCG/6-9XD, RESPIRATORY
     Dates: start: 20130808
  3. REVATIO (SILDENAFIL CITRATE) [Concomitant]

REACTIONS (11)
  - Dyspnoea [None]
  - Fungal infection [None]
  - Cystitis [None]
  - Pruritus [None]
  - Ear discomfort [None]
  - Oedema peripheral [None]
  - Musculoskeletal pain [None]
  - Pain in jaw [None]
  - Myalgia [None]
  - Vulvovaginal pruritus [None]
  - Anal pruritus [None]
